FAERS Safety Report 4982379-5 (Version None)
Quarter: 2006Q2

REPORT INFORMATION
  Report Type: 
  Country: None (occurrence: None)
  Receive Date: 20060424
  Receipt Date: 20060424
  Transmission Date: 20061013
  Serious: Yes (Hospitalization)
  Sender: FDA-Public Use
  Company Number: None

PATIENT
  Sex: Female
  Weight: 102.5129 kg

DRUGS (3)
  1. DOCETAXEL [Suspect]
     Indication: LUNG NEOPLASM MALIGNANT
     Dosage: 20 MG/M2 IV WEEKLY
     Route: 042
     Dates: start: 20060320, end: 20060417
  2. CARBOPLATIN [Suspect]
     Indication: LUNG NEOPLASM MALIGNANT
     Dosage: AUC 2.0 / WEEK IV
     Route: 042
     Dates: start: 20060320, end: 20060417
  3. RADIATION [Concomitant]

REACTIONS (7)
  - COLD SWEAT [None]
  - DIZZINESS [None]
  - DYSPEPSIA [None]
  - DYSPHAGIA [None]
  - HYPOGLYCAEMIA [None]
  - OESOPHAGITIS [None]
  - TREATMENT NONCOMPLIANCE [None]
